FAERS Safety Report 5088478-4 (Version None)
Quarter: 2006Q3

REPORT INFORMATION
  Report Type: 
  Country: None (occurrence: None)
  Receive Date: 20060823
  Receipt Date: 20060823
  Transmission Date: 20061208
  Serious: Yes (Hospitalization)
  Sender: FDA-Public Use
  Company Number: None

PATIENT
  Age: 61 Year
  Sex: Male

DRUGS (1)
  1. OXALIPLATIN [Suspect]
     Indication: COLON CANCER METASTATIC
     Dates: start: 20051109, end: 20060606

REACTIONS (7)
  - ANAEMIA [None]
  - ANTIBODY TEST POSITIVE [None]
  - CHROMATURIA [None]
  - COOMBS DIRECT TEST [None]
  - DIZZINESS [None]
  - DYSPNOEA EXERTIONAL [None]
  - JAUNDICE [None]
